FAERS Safety Report 23615777 (Version 2)
Quarter: 2024Q1

REPORT INFORMATION
  Report Type: Spontaneous
  Country: JP (occurrence: JP)
  Receive Date: 20240311
  Receipt Date: 20240327
  Transmission Date: 20240410
  Serious: Yes (Other)
  Sender: FDA-Public Use
  Company Number: JP-ASTELLAS-2024JP001789

PATIENT
  Age: 10 Decade
  Sex: Male

DRUGS (2)
  1. XTANDI [Suspect]
     Active Substance: ENZALUTAMIDE
     Indication: Product used for unknown indication
     Dosage: 80 MG/DAY, UNKNOWN FREQ.
     Route: 050
  2. XTANDI [Suspect]
     Active Substance: ENZALUTAMIDE
     Route: 050

REACTIONS (5)
  - Gastric fistula [Unknown]
  - Tumour marker increased [Unknown]
  - Underdose [Unknown]
  - Off label use [Unknown]
  - Product use issue [Unknown]
